FAERS Safety Report 15589422 (Version 2)
Quarter: 2019Q1

REPORT INFORMATION
  Report Type: Spontaneous
  Country: JP (occurrence: JP)
  Receive Date: 20181106
  Receipt Date: 20190116
  Transmission Date: 20190417
  Serious: Yes (Other)
  Sender: FDA-Public Use
  Company Number: JP-AMGEN-JPNSP2018155427

PATIENT
  Age: 73 Year
  Sex: Male

DRUGS (7)
  1. PIOGLITAZONE. [Concomitant]
     Active Substance: PIOGLITAZONE
     Dosage: 15 MG, 1X/DAY
     Route: 048
     Dates: start: 20170425, end: 20181023
  2. ENBREL [Suspect]
     Active Substance: ETANERCEPT
     Indication: RHEUMATOID ARTHRITIS
     Dosage: 50 MG, WEEKLY
     Route: 058
     Dates: start: 20160119, end: 20180829
  3. FOLIAMIN [Concomitant]
     Active Substance: FOLIC ACID
     Dosage: 5 MG, WEEKLY
     Route: 048
     Dates: start: 20160119
  4. METHOTREXATE SODIUM. [Concomitant]
     Active Substance: METHOTREXATE SODIUM
     Dosage: 4 MG, BID
     Route: 065
     Dates: start: 20181023
  5. MICAMLO [Concomitant]
     Active Substance: AMLODIPINE BESYLATE\TELMISARTAN
     Dosage: 1 DF, 1X/DAY
     Route: 048
     Dates: start: 20170124, end: 20180123
  6. MIGLITOL. [Concomitant]
     Active Substance: MIGLITOL
     Dosage: 50 MG, 3X/DAY
     Route: 048
     Dates: start: 20180424, end: 20181023
  7. MIGLITOL. [Concomitant]
     Active Substance: MIGLITOL
     Dosage: 75 MG, 3X/DAY
     Route: 048
     Dates: start: 20181023

REACTIONS (1)
  - Rectal cancer [Unknown]

NARRATIVE: CASE EVENT DATE: 2018
